FAERS Safety Report 11125768 (Version 1)
Quarter: 2015Q2

REPORT INFORMATION
  Report Type: Spontaneous
  Country: US (occurrence: US)
  Receive Date: 20150520
  Receipt Date: 20150520
  Transmission Date: 20150821
  Serious: No
  Sender: FDA-Public Use
  Company Number: US-SA-2014SA138715

PATIENT

DRUGS (1)
  1. ELOXATIN [Suspect]
     Active Substance: OXALIPLATIN
     Dosage: DOSE - 85 MG/M2 OVER 65 MINUTES
     Route: 065

REACTIONS (1)
  - Incorrect drug administration rate [Unknown]
